FAERS Safety Report 16053762 (Version 7)
Quarter: 2024Q3

REPORT INFORMATION
  Report Type: Spontaneous
  Country: HU (occurrence: HU)
  Receive Date: 20190308
  Receipt Date: 20240821
  Transmission Date: 20241017
  Serious: Yes (Hospitalization, Other)
  Sender: MYLAN
  Company Number: HU-TEVA-2018-HU-948222

PATIENT
  Age: 77 Year
  Sex: Female

DRUGS (4)
  1. TRAMADOL [Suspect]
     Active Substance: TRAMADOL\TRAMADOL HYDROCHLORIDE
     Indication: Back pain
     Dosage: UNK (INFUSION)
     Route: 042
  2. ALLOPURINOL [Suspect]
     Active Substance: ALLOPURINOL
     Indication: Hyperuricaemia
     Dosage: UNK
     Route: 048
  3. METHYLPREDNISOLONE [Suspect]
     Active Substance: METHYLPREDNISOLONE
     Indication: Back pain
     Dosage: UNK
     Route: 042
  4. GUAIFENESIN [Suspect]
     Active Substance: GUAIFENESIN
     Indication: Back pain
     Dosage: UNK, INFUSION
     Route: 042

REACTIONS (13)
  - Oropharyngeal candidiasis [Recovered/Resolved]
  - Conjunctivitis [Recovered/Resolved]
  - Blood creatinine increased [Recovered/Resolved]
  - Blood urea increased [Recovered/Resolved]
  - Iridocyclitis [Recovered/Resolved]
  - Thrombocytopenia [Recovered/Resolved]
  - Back pain [Unknown]
  - Dysphagia [Unknown]
  - Pruritus [Recovered/Resolved]
  - Eye disorder [Unknown]
  - Stevens-Johnson syndrome [Recovered/Resolved]
  - Rash [Unknown]
  - Uveitis [Unknown]
